FAERS Safety Report 16088275 (Version 2)
Quarter: 2019Q1

REPORT INFORMATION
  Report Type: Spontaneous
  Country: CA (occurrence: CA)
  Receive Date: 20190319
  Receipt Date: 20190326
  Transmission Date: 20190418
  Serious: Yes (Other)
  Sender: FDA-Public Use
  Company Number: CA-PFIZER INC-2017088378

PATIENT
  Age: 36 Year
  Sex: Male
  Weight: 55 kg

DRUGS (11)
  1. AMIKACIN. [Suspect]
     Active Substance: AMIKACIN
     Dosage: 825 MG, DAILY (825 MG IV Q24H 15MG/KG)
     Route: 042
  2. AMIKACIN. [Suspect]
     Active Substance: AMIKACIN
     Dosage: 900 MG, DAILY (900 MG IV Q24H)
     Route: 042
  3. AZITHROMYCIN ANHYDROUS. [Concomitant]
     Active Substance: AZITHROMYCIN ANHYDROUS
     Indication: MYCOBACTERIUM ABSCESSUS INFECTION
     Dosage: 500 MG, 1X/DAY
     Route: 048
  4. CEFOXITIN SODIUM [Suspect]
     Active Substance: CEFOXITIN SODIUM
     Dosage: 2 G, 4X/DAY (Q6H)
     Route: 042
  5. CEFOXITIN SODIUM [Suspect]
     Active Substance: CEFOXITIN SODIUM
     Indication: MYCOBACTERIUM ABSCESSUS INFECTION
     Dosage: 2 G, EVERY 4 HRS (2G IV Q4H)
     Route: 042
  6. TMP-SMX [Suspect]
     Active Substance: SULFAMETHOXAZOLE\TRIMETHOPRIM
     Indication: MYCOBACTERIUM ABSCESSUS INFECTION
     Dosage: UNK, 2X/DAY (DOUBLE STRENGTH PO TID)
     Route: 048
  7. MOXIFLOXACIN. [Concomitant]
     Active Substance: MOXIFLOXACIN
     Indication: MYCOBACTERIUM ABSCESSUS INFECTION
     Dosage: 400 MG, 1X/DAY
     Route: 048
  8. AMIKACIN. [Suspect]
     Active Substance: AMIKACIN
     Indication: MYCOBACTERIUM ABSCESSUS INFECTION
     Dosage: 275 MG, 3X/DAY (275 MG IV Q8H)
     Route: 042
  9. AMIKACIN. [Suspect]
     Active Substance: AMIKACIN
     Dosage: 300 MG, 3X/DAY (300 MG IV Q8H)
     Route: 042
  10. CLARITHROMYCIN. [Suspect]
     Active Substance: CLARITHROMYCIN
     Indication: MYCOBACTERIUM ABSCESSUS INFECTION
     Dosage: 500 MG, 2X/DAY (BID)
     Route: 048
  11. IMIPENEM [Concomitant]
     Active Substance: IMIPENEM
     Indication: MYCOBACTERIUM ABSCESSUS INFECTION
     Dosage: 1000 MG, 4X/DAY (EVERY 6 HOURS)
     Route: 042

REACTIONS (4)
  - Neuropathy peripheral [Recovered/Resolved]
  - Neutropenia [Recovered/Resolved]
  - Renal injury [Recovered/Resolved]
  - Nephropathy toxic [Recovered/Resolved]
